FAERS Safety Report 18858088 (Version 1)
Quarter: 2021Q1

REPORT INFORMATION
  Report Type: Spontaneous
  Country: US (occurrence: US)
  Receive Date: 20210205
  Receipt Date: 20210205
  Transmission Date: 20210420
  Serious: Yes (Other)
  Sender: FDA-Public Use
  Company Number: None

PATIENT
  Age: 28 Year
  Sex: Male
  Weight: 119 kg

DRUGS (6)
  1. BENZONATATE. [Concomitant]
     Active Substance: BENZONATATE
  2. BAMLANIVIMAB. [Suspect]
     Active Substance: BAMLANIVIMAB
     Indication: COVID-19
     Dosage: ?          OTHER FREQUENCY:ONCE;?
     Route: 042
     Dates: start: 20210129
  3. ALBUTEROL MDI [Concomitant]
     Active Substance: ALBUTEROL
  4. PREDNISONE. [Concomitant]
     Active Substance: PREDNISONE
  5. KEPPRA [Concomitant]
     Active Substance: LEVETIRACETAM
  6. CODEINE SULFATE. [Concomitant]
     Active Substance: CODEINE SULFATE

REACTIONS (3)
  - Alanine aminotransferase increased [None]
  - Liver function test increased [None]
  - Aspartate aminotransferase increased [None]

NARRATIVE: CASE EVENT DATE: 20210205
